FAERS Safety Report 17984066 (Version 1)
Quarter: 2020Q3

REPORT INFORMATION
  Report Type: Spontaneous
  Country: CA (occurrence: CA)
  Receive Date: 20200706
  Receipt Date: 20200706
  Transmission Date: 20201103
  Serious: Yes (Other)
  Sender: FDA-Public Use
  Company Number: CA-PFIZER INC-2020253430

PATIENT
  Age: 57 Year
  Sex: Female

DRUGS (9)
  1. FOLIC ACID. [Concomitant]
     Active Substance: FOLIC ACID
     Dosage: 400 UG, DAILY
     Route: 048
  2. OXALIPLATIN. [Suspect]
     Active Substance: OXALIPLATIN
     Indication: COLON CANCER STAGE III
     Dosage: 130 MG/M2 (SUBSEQUENTLY INFUSED OVER 2 TO 4H)
  3. OXALIPLATIN. [Suspect]
     Active Substance: OXALIPLATIN
     Dosage: 110.5 MG/M2
  4. METOCLOPRAMIDE. [Concomitant]
     Active Substance: METOCLOPRAMIDE
     Indication: NAUSEA
     Dosage: 10 MG, EVERY 4 HRS (EVERY 4 H AS NEEDED)
     Route: 048
  5. DEXAMETHASONE. [Concomitant]
     Active Substance: DEXAMETHASONE
     Dosage: 4 MG, 2X/DAY (TAKEN ORALLY TWICE DAILY FOR THREE DAYS)
     Route: 048
  6. ONDANSETRON [Concomitant]
     Active Substance: ONDANSETRON
     Dosage: 8 MG, 2X/DAY (ONE TABLET TAKEN ORALLY, SECOND
     Route: 048
  7. PEMETREXED. [Concomitant]
     Active Substance: PEMETREXED
     Indication: COLON CANCER STAGE III
     Dosage: 900 MG/M2, CYCLIC, SEVEN 21?DAY CYCLES
     Route: 042
  8. METOCLOPRAMIDE. [Concomitant]
     Active Substance: METOCLOPRAMIDE
     Indication: VOMITING
  9. COBALAMIN [Concomitant]
     Active Substance: COBALAMIN
     Dosage: UNK
     Route: 030

REACTIONS (2)
  - Neuropathy peripheral [Unknown]
  - Dysaesthesia [Unknown]
